FAERS Safety Report 13423585 (Version 1)
Quarter: 2017Q2

REPORT INFORMATION
  Report Type: Spontaneous
  Country: US (occurrence: US)
  Receive Date: 20170410
  Receipt Date: 20170410
  Transmission Date: 20170830
  Serious: Yes (Other)
  Sender: FDA-Public Use
  Company Number: US-PFIZER INC-2017147247

PATIENT
  Sex: Female

DRUGS (1)
  1. SERTRALINE HCL [Suspect]
     Active Substance: SERTRALINE HYDROCHLORIDE
     Dosage: 75 MG, DAILY

REACTIONS (8)
  - Irritability [Unknown]
  - Withdrawal syndrome [Unknown]
  - Drug use disorder [Unknown]
  - Headache [Unknown]
  - Anger [Unknown]
  - Mood swings [Unknown]
  - Personality change [Unknown]
  - Crying [Unknown]
